FAERS Safety Report 23376221 (Version 12)
Quarter: 2025Q1

REPORT INFORMATION
  Report Type: Spontaneous
  Country: US (occurrence: US)
  Receive Date: 20240108
  Receipt Date: 20250131
  Transmission Date: 20250408
  Serious: Yes (Hospitalization, Disabling, Other)
  Sender: SANOFI AVENTIS
  Company Number: US-SA-SAC20231229000937

PATIENT
  Age: 58 Year
  Sex: Female

DRUGS (30)
  1. DUPIXENT [Suspect]
     Active Substance: DUPILUMAB
     Indication: Rhinitis allergic
     Route: 058
     Dates: start: 20231205, end: 20231205
  2. DUPIXENT [Suspect]
     Active Substance: DUPILUMAB
     Indication: Asthma
     Dosage: 300 MG, QOW
     Route: 058
     Dates: start: 202312
  3. OZEMPIC [Suspect]
     Active Substance: SEMAGLUTIDE
  4. ROFLUMILAST [Suspect]
     Active Substance: ROFLUMILAST
  5. EFFEXOR [Concomitant]
     Active Substance: VENLAFAXINE HYDROCHLORIDE
  6. FUROSEMIDE [Concomitant]
     Active Substance: FUROSEMIDE
  7. LOSARTAN POTASSIUM [Concomitant]
     Active Substance: LOSARTAN POTASSIUM
  8. LYRICA [Concomitant]
     Active Substance: PREGABALIN
  9. METHOCARBAMOL [Concomitant]
     Active Substance: METHOCARBAMOL
  10. METHOCARBAMOL [Concomitant]
     Active Substance: METHOCARBAMOL
  11. MONTELUKAST [Concomitant]
     Active Substance: MONTELUKAST
  12. MONTELUKAST [Concomitant]
     Active Substance: MONTELUKAST
  13. SEROQUEL [Concomitant]
     Active Substance: QUETIAPINE FUMARATE
  14. REXULTI [Concomitant]
     Active Substance: BREXPIPRAZOLE
  15. REXULTI [Concomitant]
     Active Substance: BREXPIPRAZOLE
  16. ROSUVASTATIN [Concomitant]
     Active Substance: ROSUVASTATIN
  17. ROSUVASTATIN [Concomitant]
     Active Substance: ROSUVASTATIN
  18. TRELEGY ELLIPTA [Concomitant]
     Active Substance: FLUTICASONE FUROATE\UMECLIDINIUM BROMIDE\VILANTEROL TRIFENATATE
  19. WELLBUTRIN [Concomitant]
     Active Substance: BUPROPION HYDROCHLORIDE
  20. XANAX [Concomitant]
     Active Substance: ALPRAZOLAM
  21. METOPROLOL SUCCINATE [Concomitant]
     Active Substance: METOPROLOL SUCCINATE
  22. NEXIUM I.V. [Concomitant]
     Active Substance: ESOMEPRAZOLE SODIUM
  23. TRULICITY [Concomitant]
     Active Substance: DULAGLUTIDE
  24. ALBUTEROL SULFATE [Concomitant]
     Active Substance: ALBUTEROL SULFATE
  25. ASPIRIN [Concomitant]
     Active Substance: ASPIRIN
  26. TELMISARTAN [Concomitant]
     Active Substance: TELMISARTAN
  27. CIPRO [Concomitant]
     Active Substance: CIPROFLOXACIN HYDROCHLORIDE
  28. LORATADINE [Concomitant]
     Active Substance: LORATADINE
  29. EYE DROPS [TETRYZOLINE HYDROCHLORIDE] [Concomitant]
  30. ZYRTEC [Concomitant]
     Active Substance: CETIRIZINE HYDROCHLORIDE

REACTIONS (45)
  - Hospitalisation [Unknown]
  - Diabetes mellitus [Not Recovered/Not Resolved]
  - Hepatic infection [Recovering/Resolving]
  - Pancreas infection [Recovering/Resolving]
  - Loss of personal independence in daily activities [Unknown]
  - Renal disorder [Unknown]
  - Hypertension [Unknown]
  - Heart rate abnormal [Unknown]
  - Dysphonia [Unknown]
  - Influenza [Not Recovered/Not Resolved]
  - Rhinorrhoea [Unknown]
  - Nasopharyngitis [Not Recovered/Not Resolved]
  - Oropharyngeal pain [Unknown]
  - Urinary tract infection [Unknown]
  - Sneezing [Unknown]
  - Gastric infection [Unknown]
  - Abdominal pain [Unknown]
  - Diarrhoea [Unknown]
  - Nausea [Unknown]
  - Multiple allergies [Unknown]
  - Gallbladder disorder [Unknown]
  - White blood cell count increased [Unknown]
  - Abdominal discomfort [Recovering/Resolving]
  - Intervertebral disc protrusion [Not Recovered/Not Resolved]
  - Eye pain [Not Recovered/Not Resolved]
  - Pain [Not Recovered/Not Resolved]
  - Blood cholesterol increased [Not Recovered/Not Resolved]
  - Nervousness [Not Recovered/Not Resolved]
  - Eye disorder [Recovered/Resolved]
  - Back pain [Unknown]
  - Sinusitis [Not Recovered/Not Resolved]
  - Insomnia [Not Recovered/Not Resolved]
  - Dry eye [Not Recovered/Not Resolved]
  - Asthma [Unknown]
  - Dyspnoea [Not Recovered/Not Resolved]
  - Wheezing [Unknown]
  - Drug hypersensitivity [Not Recovered/Not Resolved]
  - Rash macular [Not Recovered/Not Resolved]
  - Arthralgia [Not Recovered/Not Resolved]
  - Injection site pain [Not Recovered/Not Resolved]
  - Eye irritation [Unknown]
  - Product use in unapproved indication [Unknown]
  - Wrong technique in product usage process [Unknown]
  - Accidental exposure to product [Unknown]
  - Exposure via skin contact [Unknown]

NARRATIVE: CASE EVENT DATE: 20231201
